FAERS Safety Report 13480869 (Version 1)
Quarter: 2017Q2

REPORT INFORMATION
  Report Type: Spontaneous
  Country: FR (occurrence: FR)
  Receive Date: 20170425
  Receipt Date: 20170425
  Transmission Date: 20170830
  Serious: Yes (Hospitalization, Other)
  Sender: FDA-Public Use
  Company Number: FR-JNJFOC-20170424063

PATIENT
  Age: 40 Year
  Sex: Male

DRUGS (1)
  1. STELARA [Suspect]
     Active Substance: USTEKINUMAB
     Indication: CROHN^S DISEASE
     Dosage: PATIENT  IN RTU, RECEIVED STELARA IV INJECTION FIRST, THEN SUBCUTANEOUS INJECTION(S).
     Route: 058
     Dates: start: 2016

REACTIONS (1)
  - Intervertebral discitis [Unknown]
